FAERS Safety Report 5833913-4 (Version None)
Quarter: 2008Q3

REPORT INFORMATION
  Report Type: 
  Country: None (occurrence: None)
  Receive Date: 20080805
  Receipt Date: 20080730
  Transmission Date: 20090109
  Serious: Yes (Hospitalization)
  Sender: FDA-Public Use
  Company Number: B0528793A

PATIENT
  Age: 82 Year
  Sex: Female
  Weight: 57 kg

DRUGS (11)
  1. VALTREX [Suspect]
     Indication: HERPES ZOSTER
     Dosage: 1000MG THREE TIMES PER DAY
     Route: 048
     Dates: start: 20080701, end: 20080705
  2. LOXONIN [Suspect]
     Route: 065
  3. THYRADIN [Concomitant]
     Route: 048
  4. MUCOSTA [Concomitant]
     Route: 048
  5. BEZATATE [Concomitant]
     Route: 048
  6. MAGMITT [Concomitant]
     Route: 048
  7. ALINAMIN [Concomitant]
     Route: 065
  8. SOLANAX [Concomitant]
     Route: 048
  9. MYSLEE [Concomitant]
     Route: 048
  10. LACTULOSE [Concomitant]
     Route: 048
  11. SEVEN E-P [Concomitant]
     Route: 048

REACTIONS (3)
  - EATING DISORDER [None]
  - NAUSEA [None]
  - RENAL DISORDER [None]
